FAERS Safety Report 21244955 (Version 1)
Quarter: 2022Q3

REPORT INFORMATION
  Report Type: Spontaneous
  Country: US (occurrence: US)
  Receive Date: 20220823
  Receipt Date: 20220823
  Transmission Date: 20221027
  Serious: Yes (Other)
  Sender: FDA-Public Use
  Company Number: US-AMERICAN REGENT INC-2022002442

PATIENT
  Sex: Female
  Weight: 74.83 kg

DRUGS (1)
  1. VENOFER [Suspect]
     Active Substance: IRON SUCROSE
     Indication: Iron deficiency anaemia
     Dosage: 500 MILLIGRAM DILUTE IN 250ML SODIUM CHLORIDE (^HIGH DOSE^)
     Route: 042
     Dates: start: 20220811, end: 20220811

REACTIONS (8)
  - Paraesthesia [Unknown]
  - Rash macular [Recovered/Resolved]
  - Erythema [Recovered/Resolved]
  - Maternal exposure during pregnancy [Unknown]
  - Joint swelling [Recovering/Resolving]
  - Peripheral swelling [Recovering/Resolving]
  - Pain in extremity [Recovered/Resolved]
  - Incorrect product administration duration [Unknown]

NARRATIVE: CASE EVENT DATE: 20220811
